FAERS Safety Report 12157916 (Version 1)
Quarter: 2016Q1

REPORT INFORMATION
  Report Type: Spontaneous
  Country: US (occurrence: US)
  Receive Date: 20160308
  Receipt Date: 20160308
  Transmission Date: 20160526
  Serious: Yes (Hospitalization)
  Sender: FDA-Public Use
  Company Number: US-JNJFOC-20150112733

PATIENT
  Age: 73 Year
  Sex: Male

DRUGS (6)
  1. IMBRUVICA [Suspect]
     Active Substance: IBRUTINIB
     Indication: MANTLE CELL LYMPHOMA
     Route: 048
     Dates: start: 20140104, end: 20141226
  2. CLONAZEPAM. [Concomitant]
     Active Substance: CLONAZEPAM
  3. TAMSULOSIN [Concomitant]
     Active Substance: TAMSULOSIN
  4. FLUOXETINE [Concomitant]
     Active Substance: FLUOXETINE HYDROCHLORIDE
  5. SIMVASTATIN. [Concomitant]
     Active Substance: SIMVASTATIN
  6. AGGRENOX [Concomitant]
     Active Substance: ASPIRIN\DIPYRIDAMOLE

REACTIONS (5)
  - Contusion [Recovering/Resolving]
  - Organising pneumonia [Not Recovered/Not Resolved]
  - Cellulitis [Recovered/Resolved]
  - Muscular weakness [Not Recovered/Not Resolved]
  - Petechiae [Recovering/Resolving]

NARRATIVE: CASE EVENT DATE: 201401
